FAERS Safety Report 7337498-5 (Version None)
Quarter: 2011Q1

REPORT INFORMATION
  Report Type: 
  Country: None (occurrence: None)
  Receive Date: 20110308
  Receipt Date: 20110117
  Transmission Date: 20110831
  Serious: No
  Sender: FDA-Public Use
  Company Number: BR-SANOFI-AVENTIS-200918808GDDC

PATIENT
  Age: 35 Year
  Sex: Female
  Weight: 53 kg

DRUGS (6)
  1. METHOTREXATE [Concomitant]
     Indication: ARTHRITIS
     Dosage: DOSE AS USED: 1 TABLET
     Route: 048
     Dates: end: 20090701
  2. LEVONORGESTREL AND ETHINYL ESTRADIOL [Concomitant]
     Indication: CONTRACEPTION
     Dosage: DOSE AS USED: 1 TABLET
     Route: 048
  3. PREDNISOLONE [Concomitant]
     Indication: ARTHRITIS
     Dosage: DOSE AS USED: 1 TABLET
     Route: 048
     Dates: end: 20090801
  4. OMEPRAZOLE [Concomitant]
     Indication: GASTRITIS
     Dosage: DOSE AS USED: 1 TABLET PRN
     Route: 048
  5. FOLIC ACID [Concomitant]
     Dosage: DOSE AS USED: 1 TABLET
     Route: 048
     Dates: end: 20090801
  6. ARAVA [Suspect]
     Indication: ARTHRITIS
     Dosage: DOSE AS USED: 1 TABLET
     Route: 048
     Dates: end: 20090811

REACTIONS (6)
  - AMENORRHOEA [None]
  - ULTRASOUND ANTENATAL SCREEN [None]
  - DRUG EXPOSURE DURING PREGNANCY [None]
  - MALAISE [None]
  - NAUSEA [None]
  - DECREASED APPETITE [None]
